FAERS Safety Report 19652635 (Version 2)
Quarter: 2021Q3

REPORT INFORMATION
  Report Type: Report from Study
  Country: CA (occurrence: CA)
  Receive Date: 20210803
  Receipt Date: 20210920
  Transmission Date: 20211014
  Serious: Yes (Other)
  Sender: FDA-Public Use
  Company Number: CA-JNJFOC-20210755661

PATIENT
  Age: 48 Year
  Sex: Male
  Weight: 78.5 kg

DRUGS (1)
  1. REMICADE [Suspect]
     Active Substance: INFLIXIMAB
     Indication: CROHN^S DISEASE
     Dosage: LAST REMICADE INFUSION ON 26?JUL?2021, EXPIRY DATE: 30?MAR?2024
     Route: 042

REACTIONS (14)
  - Tooth infection [Recovering/Resolving]
  - Pain [Unknown]
  - Constipation [Unknown]
  - Crohn^s disease [Not Recovered/Not Resolved]
  - Malaise [Unknown]
  - Drug ineffective [Unknown]
  - Gastrointestinal infection [Unknown]
  - Oral candidiasis [Not Recovered/Not Resolved]
  - Gingivitis [Unknown]
  - Taste disorder [Unknown]
  - Swelling [Unknown]
  - Pallor [Unknown]
  - Peripheral swelling [Unknown]
  - Mass [Unknown]

NARRATIVE: CASE EVENT DATE: 2021
